FAERS Safety Report 8426981-7 (Version None)
Quarter: 2012Q2

REPORT INFORMATION
  Report Type: 
  Country: None (occurrence: None)
  Receive Date: 20120611
  Receipt Date: 20120601
  Transmission Date: 20120825
  Serious: Yes (Death, Hospitalization)
  Sender: FDA-Public Use
  Company Number: US-ROCHE-1067335

PATIENT
  Age: 67 Year
  Sex: Male
  Weight: 49.9 kg

DRUGS (13)
  1. PROMETHAZINE [Concomitant]
  2. SIMVASTATIN [Concomitant]
  3. SODIUM PHOSPHATE [Concomitant]
  4. ZOFRAN [Concomitant]
  5. MORPHINE [Concomitant]
  6. TEMSIROLIMUS [Suspect]
     Indication: NEOPLASM MALIGNANT
     Dosage: 25 MG IV ON DAYS 1, 8, 15, 22 OF CYCLE
     Route: 042
     Dates: start: 20111216, end: 20120330
  7. METOPROLOL TARTRATE [Concomitant]
  8. POTASSIUM CHLORIDE [Concomitant]
  9. AVASTIN [Suspect]
     Indication: NEOPLASM MALIGNANT
     Dosage: 10 MG/KG IV OVER 30-90 MIN ON DAYS 1 AND 15 OF CYCLE (28 DAYS )
     Route: 042
     Dates: start: 20111216, end: 20120309
  10. ZOLPIDEM [Concomitant]
  11. ACETYLSALICYLIC ACID SRT [Concomitant]
  12. POTASSIUM [Concomitant]
  13. NEXIUM [Concomitant]

REACTIONS (1)
  - CARDIAC ARREST [None]
